FAERS Safety Report 18424816 (Version 6)
Quarter: 2020Q4

REPORT INFORMATION
  Report Type: Spontaneous
  Country: US (occurrence: US)
  Receive Date: 20201026
  Receipt Date: 20201112
  Transmission Date: 20210114
  Serious: Yes (Death, Hospitalization)
  Sender: FDA-Public Use
  Company Number: US-CELGENEUS-USA-20201006119

PATIENT
  Age: 82 Year
  Sex: Female
  Weight: 71.73 kg

DRUGS (1)
  1. REVLIMID [Suspect]
     Active Substance: LENALIDOMIDE
     Indication: PLASMA CELL MYELOMA
     Dosage: 10 MILLIGRAM
     Route: 048
     Dates: start: 20201003, end: 202010

REACTIONS (3)
  - Plasma cell myeloma [Fatal]
  - Pneumonia [Unknown]
  - White blood cell count increased [Unknown]

NARRATIVE: CASE EVENT DATE: 202010
